FAERS Safety Report 22208900 (Version 1)
Quarter: 2023Q2

REPORT INFORMATION
  Report Type: Spontaneous
  Country: TR (occurrence: TR)
  Receive Date: 20230413
  Receipt Date: 20230413
  Transmission Date: 20230722
  Serious: Yes (Death, Life-Threatening, Hospitalization, Other)
  Sender: FDA-Public Use
  Company Number: TR-SA-2023SA110766

PATIENT
  Age: 70 Year
  Sex: Female

DRUGS (4)
  1. WARFARIN SODIUM [Suspect]
     Active Substance: WARFARIN SODIUM
     Indication: Prophylaxis
     Dosage: UNK
  2. ENOXAPARIN SODIUM [Suspect]
     Active Substance: ENOXAPARIN SODIUM
     Dosage: FULL DOSE
     Route: 058
  3. RIVAROXABAN [Suspect]
     Active Substance: RIVAROXABAN
     Dosage: 20 MG, QD
  4. VITAMIN K [Concomitant]
     Active Substance: PHYTONADIONE
     Indication: Procoagulant therapy
     Dosage: UNK
     Route: 042

REACTIONS (8)
  - Retroperitoneal haemorrhage [Fatal]
  - Flank pain [Fatal]
  - Musculoskeletal stiffness [Fatal]
  - Haemorrhage [Fatal]
  - Abdominal distension [Fatal]
  - Retroperitoneal haematoma [Fatal]
  - Retroperitoneal mass [Fatal]
  - Respiratory distress [Fatal]
